FAERS Safety Report 4301301-8 (Version None)
Quarter: 2004Q1

REPORT INFORMATION
  Report Type: 
  Country: None (occurrence: None)
  Receive Date: 20040220
  Receipt Date: 20040220
  Transmission Date: 20041129
  Serious: Yes (Hospitalization)
  Sender: FDA-Public Use
  Company Number: None

PATIENT
  Age: 53 Year
  Sex: Female

DRUGS (6)
  1. INDOMETHACIN [Suspect]
     Indication: ARTHRITIS
     Dosage: 75 MG PO BID
     Route: 048
     Dates: start: 20020929, end: 20030929
  2. INDOMETHACIN [Suspect]
     Indication: ARTHRITIS
     Dosage: 75 MG PO BID
     Route: 048
     Dates: start: 20030915, end: 20030929
  3. DIOVAN [Concomitant]
  4. NORVASC [Concomitant]
  5. LANTUS [Concomitant]
  6. GABAPENTIN [Concomitant]

REACTIONS (2)
  - FAECES DISCOLOURED [None]
  - OCCULT BLOOD POSITIVE [None]
